FAERS Safety Report 13257700 (Version 1)
Quarter: 2017Q1

REPORT INFORMATION
  Report Type: Spontaneous
  Country: US (occurrence: US)
  Receive Date: 20170221
  Receipt Date: 20170221
  Transmission Date: 20170428
  Serious: Yes (Death, Other)
  Sender: FDA-Public Use
  Company Number: US-CORDEN PHARMA LATINA S.P.A.-US-2017COR000021

PATIENT
  Sex: Female

DRUGS (1)
  1. CARBOPLATIN. [Suspect]
     Active Substance: CARBOPLATIN
     Indication: OVARIAN CANCER STAGE III
     Dosage: UNK

REACTIONS (5)
  - Hypotension [Fatal]
  - Hypersensitivity [Unknown]
  - Cardio-respiratory arrest [Fatal]
  - Circulatory collapse [Fatal]
  - Anaphylactic reaction [Fatal]
